FAERS Safety Report 17544709 (Version 1)
Quarter: 2020Q1

REPORT INFORMATION
  Report Type: Other
  Country: US (occurrence: US)
  Receive Date: 20200316
  Receipt Date: 20200316
  Transmission Date: 20200409
  Serious: Yes (Other)
  Sender: FDA-Public Use
  Company Number: US-MACLEODS PHARMACEUTICALS US LTD-MAC2020025550

PATIENT

DRUGS (2)
  1. TRUVADA [Suspect]
     Active Substance: EMTRICITABINE\TENOFOVIR DISOPROXIL FUMARATE
     Indication: HIV INFECTION
     Dosage: PRIOR TO CONCEPTION 1 COURSE OF TRUVADA, TVD 1 TAB/CAPS FIRST TRIMESTER OF PREGNANCY ONWARDS
     Route: 048
  2. LAMIVUDINE. [Suspect]
     Active Substance: LAMIVUDINE
     Indication: HIV INFECTION
     Dosage: PRIOR TO CONCEPTION 1 COURSE OF LAMIVUDINE 1 TAB/CAPS DURING FIRST TRIMESTER OF PREGNANCY
     Route: 048

REACTIONS (2)
  - Maternal exposure during pregnancy [Unknown]
  - Stillbirth [Unknown]

NARRATIVE: CASE EVENT DATE: 20191225
